FAERS Safety Report 7641629-7 (Version None)
Quarter: 2011Q3

REPORT INFORMATION
  Report Type: 
  Country: None (occurrence: None)
  Receive Date: 20110728
  Receipt Date: 20110708
  Transmission Date: 20111222
  Serious: Yes (Hospitalization)
  Sender: FDA-Public Use
  Company Number: US-GLAXOSMITHKLINE-A0813666A

PATIENT
  Age: 55 Year
  Sex: Male
  Weight: 100.9 kg

DRUGS (11)
  1. NEURONTIN [Concomitant]
  2. ZETIA [Concomitant]
  3. INSULIN [Concomitant]
  4. NEXIUM [Concomitant]
  5. ZOCOR [Concomitant]
  6. AVANDIA [Suspect]
     Indication: TYPE 2 DIABETES MELLITUS
     Dosage: 4MG TWICE PER DAY
     Route: 048
     Dates: end: 20070101
  7. BEXTRA [Concomitant]
  8. AVANDAMET [Suspect]
     Indication: DIABETES MELLITUS
     Dosage: 2TAB TWICE PER DAY
     Route: 048
     Dates: start: 20030815
  9. MAXAIR [Concomitant]
  10. METFORMIN HCL [Concomitant]
  11. ALTACE [Concomitant]

REACTIONS (2)
  - HEART INJURY [None]
  - CORONARY ARTERY DISEASE [None]
